FAERS Safety Report 8091998-1 (Version None)
Quarter: 2012Q1

REPORT INFORMATION
  Report Type: 
  Country: None (occurrence: None)
  Receive Date: 20120131
  Receipt Date: 20120124
  Transmission Date: 20120608
  Serious: Yes (Other)
  Sender: FDA-Public Use
  Company Number: US-JNJFOC-20110903324

PATIENT
  Sex: Male
  Weight: 98.43 kg

DRUGS (19)
  1. LEVAQUIN [Suspect]
     Indication: PNEUMONIA
     Route: 042
  2. VERAPAMIL [Concomitant]
     Indication: HYPERTENSION
     Route: 065
  3. LEVOTHYROXINE SODIUM [Concomitant]
     Indication: THYROID DISORDER
     Route: 065
  4. FLOMAX [Concomitant]
     Indication: PROSTATOMEGALY
     Route: 065
  5. LABETALOL HCL [Concomitant]
     Indication: HYPERTENSION
     Route: 065
  6. XANAX [Concomitant]
     Indication: ANXIETY
     Route: 065
  7. IBUPROFEN [Concomitant]
     Indication: PAIN
     Route: 065
  8. PREDNISONE TAB [Suspect]
     Indication: STEROID THERAPY
     Route: 065
  9. METHYLPREDNISOLONE [Suspect]
     Indication: STEROID THERAPY
     Route: 065
  10. CLONIDINE HCL [Concomitant]
     Indication: HYPERTENSION
     Route: 065
  11. SPIRIVA [Concomitant]
     Indication: CHRONIC OBSTRUCTIVE PULMONARY DISEASE
     Route: 065
  12. POTASSIUM CHLORIDE [Concomitant]
     Indication: BLOOD POTASSIUM DECREASED
     Route: 065
  13. WARFARIN SODIUM [Concomitant]
  14. LEVAQUIN [Suspect]
     Indication: BACTERIAL INFECTION
     Route: 048
     Dates: start: 20110101
  15. ROXICET [Concomitant]
     Indication: PAIN
     Route: 065
  16. CYMBALTA [Concomitant]
     Indication: DEPRESSION
     Route: 065
  17. TRICOR [Concomitant]
     Indication: BLOOD CHOLESTEROL INCREASED
     Route: 065
  18. VITAMIN B-12 [Concomitant]
     Indication: PROPHYLAXIS
     Route: 065
  19. OMEPRAZOLE [Concomitant]
     Indication: GASTROOESOPHAGEAL REFLUX DISEASE
     Route: 065

REACTIONS (1)
  - ROTATOR CUFF SYNDROME [None]
